FAERS Safety Report 7399747-7 (Version None)
Quarter: 2011Q2

REPORT INFORMATION
  Report Type: 
  Country: None (occurrence: None)
  Receive Date: 20110407
  Receipt Date: 20110401
  Transmission Date: 20111010
  Serious: Yes (Death, Hospitalization)
  Sender: FDA-Public Use
  Company Number: JP-BAYER-200914282BYL

PATIENT
  Sex: Male
  Weight: 44.3 kg

DRUGS (12)
  1. JU-KAMA [Concomitant]
     Dosage: 1.5 G (DAILY DOSE), , ORAL
     Route: 048
     Dates: start: 20090303
  2. NEXAVAR [Suspect]
     Indication: RENAL CELL CARCINOMA
     Dosage: 800 MG (DAILY DOSE), , ORAL
     Route: 048
     Dates: start: 20090220, end: 20090625
  3. DECADRON [Concomitant]
     Dosage: 1 MG (DAILY DOSE), , ORAL
     Route: 048
     Dates: start: 20091008
  4. LOPEMIN [Concomitant]
     Dosage: 1 MG (DAILY DOSE), , ORAL
     Route: 048
     Dates: start: 20090528
  5. LORCAM [Concomitant]
     Dosage: 12 MG (DAILY DOSE), , ORAL
     Route: 048
     Dates: start: 20090716
  6. WARFARIN SODIUM [Concomitant]
     Dosage: 2 MG (DAILY DOSE), , ORAL
     Route: 048
     Dates: start: 20090224, end: 20090323
  7. AMLODIN [Concomitant]
     Dosage: 2.5 MG (DAILY DOSE), , ORAL
     Route: 048
     Dates: start: 20090310, end: 20090323
  8. AMLODIN [Concomitant]
     Dosage: 5 MG (DAILY DOSE), , ORAL
     Route: 048
     Dates: start: 20090324
  9. WARFARIN SODIUM [Concomitant]
     Dosage: 1.75 MG (DAILY DOSE), , ORAL
     Route: 048
     Dates: start: 20090324
  10. TAKEPRON [Concomitant]
     Dosage: 15 MG (DAILY DOSE), , ORAL
     Route: 048
     Dates: start: 20090825
  11. NEXAVAR [Suspect]
     Dosage: 400 MG (DAILY DOSE), , ORAL
     Route: 048
     Dates: start: 20090626, end: 20091019
  12. PARIET [Concomitant]
     Dosage: 10 MG (DAILY DOSE), , ORAL
     Route: 048
     Dates: start: 20090716

REACTIONS (8)
  - HYPOTHYROIDISM [None]
  - RENAL CELL CARCINOMA [None]
  - PANCYTOPENIA [None]
  - PALMAR-PLANTAR ERYTHRODYSAESTHESIA SYNDROME [None]
  - DIARRHOEA [None]
  - LIPASE INCREASED [None]
  - BLOOD AMYLASE INCREASED [None]
  - HYPERTENSION [None]
